FAERS Safety Report 21506230 (Version 1)
Quarter: 2022Q4

REPORT INFORMATION
  Report Type: Spontaneous
  Country: US (occurrence: US)
  Receive Date: 20221026
  Receipt Date: 20221026
  Transmission Date: 20230112
  Serious: Yes (Other)
  Sender: FDA-Public Use
  Company Number: US-NOVARTISTESTPH-NVSC2022US238595

PATIENT
  Sex: Female

DRUGS (2)
  1. AFINITOR [Suspect]
     Active Substance: EVEROLIMUS
     Indication: Renal cell carcinoma
     Dosage: UNK (1ST LINE TREATMENT)
     Route: 065
  2. LENVATINIB [Suspect]
     Active Substance: LENVATINIB
     Indication: Renal cell carcinoma
     Dosage: UNK (1ST LINE TREATMENT (INSTEAD OF INDICATED 2ND LINE OR LATER)
     Route: 065

REACTIONS (2)
  - Renal cell carcinoma [Unknown]
  - Malignant neoplasm progression [Unknown]
